FAERS Safety Report 10168766 (Version 1)
Quarter: 2014Q2

REPORT INFORMATION
  Report Type: Spontaneous
  Country: US (occurrence: None)
  Receive Date: 20140509
  Receipt Date: 20140509
  Transmission Date: 20141212
  Serious: Yes (Hospitalization, Other)
  Sender: FDA-Public Use
  Company Number: ANI-2014-1373876

PATIENT
  Age: 33 Year
  Sex: Female

DRUGS (4)
  1. FLUOXETINE (NON-SPECIFIC) [Suspect]
     Indication: OBSESSIVE-COMPULSIVE DISORDER
     Route: 048
  2. NIMODIPINE [Concomitant]
  3. LABETALOL [Concomitant]
  4. VERAPAMI XR [Concomitant]

REACTIONS (8)
  - Cerebral vasoconstriction [None]
  - Headache [None]
  - Caesarean section [None]
  - Exposure during pregnancy [None]
  - Nausea [None]
  - Vomiting [None]
  - No therapeutic response [None]
  - Blood pressure increased [None]
